FAERS Safety Report 5664999-8 (Version None)
Quarter: 2008Q1

REPORT INFORMATION
  Report Type: 
  Country: None (occurrence: None)
  Receive Date: 20080314
  Receipt Date: 20080303
  Transmission Date: 20080703
  Serious: Yes (Hospitalization, Other)
  Sender: FDA-Public Use
  Company Number: US-PFIZER INC-2008019792

PATIENT
  Sex: Female
  Weight: 52.8 kg

DRUGS (19)
  1. REVATIO [Suspect]
     Indication: PULMONARY HYPERTENSION
  2. TRACLEER [Suspect]
     Indication: PULMONARY HYPERTENSION
     Route: 048
     Dates: start: 20060930, end: 20080109
  3. REVIA [Suspect]
     Dates: start: 20080102, end: 20080105
  4. SYNTHROID [Concomitant]
  5. DIGOXIN [Concomitant]
  6. CALCIUM [Concomitant]
  7. ACTONEL [Concomitant]
  8. COUMADIN [Concomitant]
  9. QUESTRAN [Concomitant]
  10. LOMOTIL [Concomitant]
  11. FERROUS SULFATE TAB [Concomitant]
  12. LASIX [Concomitant]
  13. KAOPECTATE (US) [Concomitant]
  14. ULTRAM [Concomitant]
  15. PROTONIX [Concomitant]
  16. FLAGYL [Concomitant]
  17. SPIRONOLACTONE [Concomitant]
  18. TYLENOL EXTRA-STRENGTH [Concomitant]
  19. ZAROXOLYN [Concomitant]

REACTIONS (10)
  - ALANINE AMINOTRANSFERASE INCREASED [None]
  - ASPARTATE AMINOTRANSFERASE INCREASED [None]
  - BLOOD BILIRUBIN INCREASED [None]
  - DIARRHOEA [None]
  - DRUG TOXICITY [None]
  - FEELING ABNORMAL [None]
  - GASTROINTESTINAL HAEMORRHAGE [None]
  - HALLUCINATION [None]
  - LIVER FUNCTION TEST ABNORMAL [None]
  - MEDICATION ERROR [None]
